FAERS Safety Report 7755513-1 (Version None)
Quarter: 2011Q3

REPORT INFORMATION
  Report Type: 
  Country: None (occurrence: None)
  Receive Date: 20110914
  Receipt Date: 20110901
  Transmission Date: 20111222
  Serious: Yes (Hospitalization)
  Sender: FDA-Public Use
  Company Number: 1021288

PATIENT
  Age: 34 Year
  Sex: Female
  Weight: 113.89 kg

DRUGS (1)
  1. BUPIVACAINE HCL [Suspect]
     Indication: CAESAREAN SECTION
     Dosage: INTRATHECAL
     Route: 037
     Dates: start: 20110823, end: 20110823

REACTIONS (5)
  - MATERNAL EXPOSURE DURING PREGNANCY [None]
  - DRUG INEFFECTIVE [None]
  - CHEST PAIN [None]
  - ELECTROCARDIOGRAM P WAVE ABNORMAL [None]
  - PROCEDURAL COMPLICATION [None]
